FAERS Safety Report 15390551 (Version 1)
Quarter: 2018Q3

REPORT INFORMATION
  Report Type: Spontaneous
  Country: US (occurrence: US)
  Receive Date: 20180917
  Receipt Date: 20180917
  Transmission Date: 20181010
  Serious: No
  Sender: FDA-Public Use
  Company Number: US-LPDUSPRD-20171323

PATIENT
  Age: 82 Year
  Sex: Female
  Weight: 73.48 kg

DRUGS (1)
  1. INJECTAFER [Suspect]
     Active Substance: FERRIC CARBOXYMALTOSE
     Dosage: 750 MG
     Route: 042
     Dates: start: 20170901, end: 20170908

REACTIONS (1)
  - Hypophosphataemia [Unknown]

NARRATIVE: CASE EVENT DATE: 20170907
